FAERS Safety Report 5869411-1 (Version None)
Quarter: 2008Q3

REPORT INFORMATION
  Report Type: 
  Country: None (occurrence: None)
  Receive Date: 20080828
  Receipt Date: 20080813
  Transmission Date: 20090109
  Serious: Yes (Disabling)
  Sender: FDA-Public Use
  Company Number: 2008S1014676

PATIENT
  Sex: Female

DRUGS (3)
  1. ALENDRONATE SODIUM [Suspect]
     Indication: OSTEOPOROSIS
     Dosage: 70 MG; WEEKLY; ORAL
     Route: 048
     Dates: start: 20080303, end: 20080416
  2. ADCAL-D3 [Suspect]
  3. NORTRIPTYLINE HCL [Concomitant]

REACTIONS (4)
  - ARTHRALGIA [None]
  - DIARRHOEA [None]
  - JOINT CREPITATION [None]
  - JOINT STIFFNESS [None]
